FAERS Safety Report 5411504-7 (Version None)
Quarter: 2007Q3

REPORT INFORMATION
  Report Type: 
  Country: None (occurrence: None)
  Receive Date: 20070810
  Receipt Date: 20070801
  Transmission Date: 20080115
  Serious: Yes (Hospitalization)
  Sender: FDA-Public Use
  Company Number: US-PFIZER INC-2007019629

PATIENT
  Age: 31 Year
  Sex: Female
  Weight: 56.7 kg

DRUGS (1)
  1. ALPRAZOLAM [Suspect]

REACTIONS (1)
  - FALL [None]
